FAERS Safety Report 15716598 (Version 1)
Quarter: 2018Q4

REPORT INFORMATION
  Report Type: Spontaneous
  Country: DE (occurrence: DE)
  Receive Date: 20181213
  Receipt Date: 20181213
  Transmission Date: 20190205
  Serious: Yes (Other)
  Sender: FDA-Public Use
  Company Number: DE-AUROBINDO-AUR-APL-2018-059755

PATIENT
  Age: 70 Year
  Sex: Male

DRUGS (6)
  1. GENTAMICIN. [Suspect]
     Active Substance: GENTAMICIN
     Indication: PHARYNGITIS
  2. GENTAMICIN. [Suspect]
     Active Substance: GENTAMICIN
     Indication: CONJUNCTIVITIS
  3. CEFUROXIME 500 MG FILM COATED TABLET [Suspect]
     Active Substance: CEFUROXIME SODIUM
     Indication: PHARYNGITIS
     Dosage: UNKNOWN
     Route: 065
     Dates: end: 20181113
  4. CEFUROXIME 500 MG FILM COATED TABLET [Suspect]
     Active Substance: CEFUROXIME SODIUM
     Indication: CONJUNCTIVITIS
  5. GENTAMICIN. [Suspect]
     Active Substance: GENTAMICIN
     Indication: INFLUENZA LIKE ILLNESS
     Dosage: UNKNOWN
     Route: 065
  6. CEFUROXIME 500 MG FILM COATED TABLET [Suspect]
     Active Substance: CEFUROXIME SODIUM
     Indication: INFLUENZA LIKE ILLNESS

REACTIONS (4)
  - Swelling of eyelid [Not Recovered/Not Resolved]
  - Swelling face [Not Recovered/Not Resolved]
  - Lipoedema [Not Recovered/Not Resolved]
  - Eye haemorrhage [Not Recovered/Not Resolved]
